FAERS Safety Report 9466597 (Version 1)
Quarter: 2013Q3

REPORT INFORMATION
  Report Type: Spontaneous
  Country: US (occurrence: None)
  Receive Date: 20130816
  Receipt Date: 20130816
  Transmission Date: 20140515
  Serious: Yes (Hospitalization)
  Sender: FDA-Public Use
  Company Number: None

PATIENT
  Age: 74 Year
  Sex: Male
  Weight: 88.3 kg

DRUGS (2)
  1. TOPOTECAN [Suspect]
     Indication: LUNG NEOPLASM MALIGNANT
     Route: 048
     Dates: start: 20130717, end: 20130722
  2. CLOPIDOGREL [Suspect]
     Route: 048
     Dates: start: 20110701, end: 20130807

REACTIONS (3)
  - Melaena [None]
  - Thrombocytopenia [None]
  - Gastric haemorrhage [None]
